FAERS Safety Report 14649107 (Version 1)
Quarter: 2018Q1

REPORT INFORMATION
  Report Type: Spontaneous
  Country: US (occurrence: US)
  Receive Date: 20180316
  Receipt Date: 20180316
  Transmission Date: 20180509
  Serious: No
  Sender: FDA-Public Use
  Company Number: US-JNJFOC-20180301301

PATIENT

DRUGS (4)
  1. STELARA [Suspect]
     Active Substance: USTEKINUMAB
     Indication: PSORIASIS
     Route: 058
  2. AMLODIPINE [Concomitant]
     Active Substance: AMLODIPINE BESYLATE
     Route: 065
  3. VALSARTAN. [Concomitant]
     Active Substance: VALSARTAN
     Route: 065
  4. HYDROCHLOROTHIAZIDE. [Concomitant]
     Active Substance: HYDROCHLOROTHIAZIDE
     Route: 065

REACTIONS (4)
  - Muscle strain [Unknown]
  - Hypoaesthesia [Unknown]
  - Psoriasis [Unknown]
  - Headache [Unknown]

NARRATIVE: CASE EVENT DATE: 201801
